FAERS Safety Report 24827747 (Version 2)
Quarter: 2025Q1

REPORT INFORMATION
  Report Type: Spontaneous
  Country: IT (occurrence: IT)
  Receive Date: 20250109
  Receipt Date: 20250310
  Transmission Date: 20250409
  Serious: Yes (Other)
  Sender: ELI LILLY AND COMPANY
  Company Number: IT-ELI_LILLY_AND_COMPANY-IT202501003257

PATIENT
  Age: 72 Year
  Sex: Female

DRUGS (4)
  1. MOUNJARO [Suspect]
     Active Substance: TIRZEPATIDE
     Indication: Product used for unknown indication
     Route: 065
     Dates: start: 202412
  2. MOUNJARO [Suspect]
     Active Substance: TIRZEPATIDE
     Indication: Product used for unknown indication
     Route: 065
  3. ASPIRIN [Concomitant]
     Active Substance: ASPIRIN
     Indication: Hypertension
     Route: 065
  4. BERBERINE [Concomitant]
     Active Substance: BERBERINE
     Indication: Blood cholesterol
     Route: 065

REACTIONS (1)
  - Meningioma [Unknown]
